FAERS Safety Report 12652143 (Version 1)
Quarter: 2016Q3

REPORT INFORMATION
  Report Type: Spontaneous
  Country: US (occurrence: US)
  Receive Date: 20160815
  Receipt Date: 20160815
  Transmission Date: 20161109
  Serious: Yes (Other)
  Sender: FDA-Public Use
  Company Number: US-GLAXOSMITHKLINE-US2016116233

PATIENT
  Sex: Male

DRUGS (6)
  1. MOBEC [Concomitant]
     Active Substance: MELOXICAM
  2. ADVAIR DISKUS [Suspect]
     Active Substance: FLUTICASONE PROPIONATE\SALMETEROL XINAFOATE
     Indication: ASTHMA
     Dosage: UNKNOWN
     Route: 055
     Dates: start: 201604, end: 201606
  3. AMITRIPTYLINE [Concomitant]
     Active Substance: AMITRIPTYLINE
  4. MOBIC [Concomitant]
     Active Substance: MELOXICAM
  5. VENTOLIN HFA [Concomitant]
     Active Substance: ALBUTEROL SULFATE
  6. BACTRIM [Concomitant]
     Active Substance: SULFAMETHOXAZOLE\TRIMETHOPRIM

REACTIONS (16)
  - Adrenal disorder [Unknown]
  - Angina bullosa haemorrhagica [Not Recovered/Not Resolved]
  - Thrombosis [Recovering/Resolving]
  - Cushing^s syndrome [Unknown]
  - Swelling face [Not Recovered/Not Resolved]
  - Fat tissue increased [Not Recovered/Not Resolved]
  - Headache [Not Recovered/Not Resolved]
  - Skin exfoliation [Not Recovered/Not Resolved]
  - Swelling [Unknown]
  - Discomfort [Not Recovered/Not Resolved]
  - Back pain [Not Recovered/Not Resolved]
  - Pain [Not Recovered/Not Resolved]
  - Skin discolouration [Recovering/Resolving]
  - Muscle spasms [Recovering/Resolving]
  - Abdominal distension [Not Recovered/Not Resolved]
  - Fat tissue decreased [Not Recovered/Not Resolved]
